FAERS Safety Report 5679983-8 (Version None)
Quarter: 2008Q1

REPORT INFORMATION
  Report Type: 
  Country: None (occurrence: None)
  Receive Date: 20080325
  Receipt Date: 20080325
  Transmission Date: 20080703
  Serious: Yes (Hospitalization)
  Sender: FDA-Public Use
  Company Number: None

PATIENT
  Sex: Female
  Weight: 77.1115 kg

DRUGS (7)
  1. LYRICA [Suspect]
     Dosage: 75 MG 2XDAY 2XDAY
     Dates: start: 20070918
  2. LYRICA [Suspect]
     Dosage: 75 MG 2XDAY 2XDAY
     Dates: start: 20071002
  3. LYRICA [Suspect]
     Dosage: 75 MG 2XDAY 2XDAY
     Dates: start: 20071221
  4. WELLBUTRIN [Concomitant]
  5. XANAX [Concomitant]
  6. SERAQUEL [Concomitant]
  7. NEXIUM [Concomitant]

REACTIONS (4)
  - BRONCHOPNEUMONIA [None]
  - BRONCHOSPASM [None]
  - FLUID RETENTION [None]
  - OEDEMA [None]
